FAERS Safety Report 14516199 (Version 1)
Quarter: 2018Q1

REPORT INFORMATION
  Report Type: Spontaneous
  Country: DE (occurrence: DE)
  Receive Date: 20180211
  Receipt Date: 20180211
  Transmission Date: 20180509
  Serious: Yes (Disabling, Other)
  Sender: FDA-Public Use
  Company Number: DE-ASTRAZENECA-2018SE15048

PATIENT
  Age: 48 Year
  Sex: Female
  Weight: 86 kg

DRUGS (5)
  1. LATANOPROST. [Concomitant]
     Active Substance: LATANOPROST
     Dosage: ONE DROPP BOTH SIDES I THE EVENING
     Dates: start: 201710
  2. QUETIAPINE. [Suspect]
     Active Substance: QUETIAPINE
     Route: 048
  3. ZELDOX [Suspect]
     Active Substance: ZIPRASIDONE
     Indication: SCHIZOPHRENIA
     Dosage: 20 MG TWICE A DAILY (EACH IN MORNING AND IN THE EVENING)
     Route: 048
  4. ABILIFY [Concomitant]
     Active Substance: ARIPIPRAZOLE
     Dates: start: 2014
  5. ZELDOX [Suspect]
     Active Substance: ZIPRASIDONE
     Indication: SCHIZOPHRENIA
     Route: 065
     Dates: start: 20080731

REACTIONS (4)
  - Glaucoma [Unknown]
  - Apathy [Unknown]
  - Fatigue [Unknown]
  - Visual acuity reduced [Not Recovered/Not Resolved]

NARRATIVE: CASE EVENT DATE: 2016
